FAERS Safety Report 4618009-1 (Version None)
Quarter: 2005Q1

REPORT INFORMATION
  Report Type: 
  Country: None (occurrence: None)
  Receive Date: 20050324
  Receipt Date: 20050321
  Transmission Date: 20050727
  Serious: Yes (Death, Hospitalization)
  Sender: FDA-Public Use
  Company Number: US-SANOFI-SYNTHELABO-F01200500438

PATIENT
  Sex: Male

DRUGS (10)
  1. OXALIPLATIN [Suspect]
     Indication: COLORECTAL CANCER METASTATIC
     Route: 042
     Dates: start: 20050209, end: 20050209
  2. FLUOROURACIL [Suspect]
     Dosage: 588 MG BOLUS + 980 MG CONTINUOUS INFUSION, Q2W
     Route: 042
     Dates: start: 20050209, end: 20050210
  3. LEUCOVORIN [Suspect]
     Route: 042
     Dates: start: 20050209, end: 20050210
  4. BEVACIZUMAB [Suspect]
     Route: 042
     Dates: start: 20050209, end: 20050209
  5. ERLOTINIB [Suspect]
     Route: 048
     Dates: start: 20050110, end: 20050222
  6. CLONIDINE [Concomitant]
     Dosage: UNK
     Route: 065
  7. ALDOMET [Concomitant]
     Dosage: UNK
     Route: 065
  8. TOPROL-XL [Concomitant]
     Dosage: UNK
     Route: 065
  9. VERAPAMIL [Concomitant]
     Dosage: UNK
     Route: 065
  10. COUMADIN [Concomitant]
     Dosage: UNK
     Route: 065

REACTIONS (11)
  - CATHETER SITE DISCHARGE [None]
  - DEATH [None]
  - DEHYDRATION [None]
  - DIARRHOEA [None]
  - FALL [None]
  - HAEMATOCRIT DECREASED [None]
  - HAEMORRHAGE [None]
  - NAUSEA [None]
  - PLATELET COUNT DECREASED [None]
  - RENAL FAILURE [None]
  - VOMITING [None]
